FAERS Safety Report 25458409 (Version 8)
Quarter: 2025Q3

REPORT INFORMATION
  Report Type: Report from Study
  Country: CN (occurrence: CN)
  Receive Date: 20250620
  Receipt Date: 20250805
  Transmission Date: 20251021
  Serious: Yes (Hospitalization)
  Sender: ABBVIE
  Company Number: CN-ABBVIE-6295182

PATIENT
  Age: 31 Year
  Sex: Male
  Weight: 95 kg

DRUGS (4)
  1. RINVOQ [Suspect]
     Active Substance: UPADACITINIB
     Indication: Dermatitis atopic
     Dosage: FORM STRENGTH:15 MILLIGRAM
     Route: 048
     Dates: start: 20240419, end: 202406
  2. RINVOQ [Suspect]
     Active Substance: UPADACITINIB
     Indication: Dermatitis atopic
     Dosage: FORM STRENGTH:15 MILLIGRAM
     Route: 048
     Dates: start: 20231227, end: 20231229
  3. RINVOQ [Suspect]
     Active Substance: UPADACITINIB
     Indication: Dermatitis atopic
     Dosage: FORM STRENGTH:15 MILLIGRAM
     Route: 048
     Dates: start: 20231230, end: 20240418
  4. ABROCITINIB [Concomitant]
     Active Substance: ABROCITINIB
     Indication: Dermatitis atopic
     Route: 048
     Dates: start: 202406, end: 202408

REACTIONS (4)
  - Dermatitis atopic [Recovered/Resolved]
  - Pulmonary mass [Recovering/Resolving]
  - Soft tissue mass [Recovering/Resolving]
  - Pneumonia [Not Recovered/Not Resolved]

NARRATIVE: CASE EVENT DATE: 20241122
